FAERS Safety Report 5108216-6 (Version None)
Quarter: 2006Q3

REPORT INFORMATION
  Report Type: 
  Country: None (occurrence: None)
  Receive Date: 20060919
  Receipt Date: 20060807
  Transmission Date: 20061208
  Serious: Yes (Other)
  Sender: FDA-Public Use
  Company Number: US-SANOFI-SYNTHELABO-A03200604970

PATIENT
  Sex: Female
  Weight: 47.6 kg

DRUGS (5)
  1. AMBIEN [Suspect]
     Indication: INSOMNIA
     Route: 048
     Dates: start: 20050301, end: 20060701
  2. WELLBUTRIN [Concomitant]
     Dosage: UNK
     Route: 048
     Dates: start: 20040101
  3. AMBIEN [Suspect]
     Route: 048
     Dates: start: 20050501, end: 20060801
  4. LIPITOR [Concomitant]
     Dosage: UNK
     Route: 048
     Dates: start: 20060201
  5. LITHIUM [Concomitant]
     Dosage: UNK
     Route: 048
     Dates: start: 20040101

REACTIONS (6)
  - ABNORMAL BEHAVIOUR [None]
  - AMNESIA [None]
  - DRUG INEFFECTIVE [None]
  - EATING DISORDER [None]
  - IMPAIRED DRIVING ABILITY [None]
  - SLEEP WALKING [None]
